FAERS Safety Report 4534703-5 (Version None)
Quarter: 2004Q4

REPORT INFORMATION
  Report Type: 
  Country: None (occurrence: None)
  Receive Date: 20041222
  Receipt Date: 20031117
  Transmission Date: 20050328
  Serious: No
  Sender: FDA-Public Use
  Company Number: US-BRISTOL-MYERS SQUIBB COMPANY-12437299

PATIENT
  Age: 59 Year
  Sex: Female

DRUGS (5)
  1. PRAVACHOL [Suspect]
     Dosage: DOSE INCREASED TO 40 MG DAILY IN SEP-2003.
     Route: 048
     Dates: start: 20021011
  2. DYAZIDE [Concomitant]
  3. TOPROL-XL [Concomitant]
  4. PLAVIX [Concomitant]
  5. ZETIA [Concomitant]

REACTIONS (1)
  - ALOPECIA [None]
